FAERS Safety Report 10178835 (Version 1)
Quarter: 2014Q2

REPORT INFORMATION
  Report Type: Spontaneous
  Country: US (occurrence: US)
  Receive Date: 20140519
  Receipt Date: 20140519
  Transmission Date: 20141212
  Serious: No
  Sender: FDA-Public Use
  Company Number: US-BIOGENIDEC-2014BI027068

PATIENT
  Age: 58 Year
  Sex: Female

DRUGS (11)
  1. TECFIDERA [Suspect]
     Indication: MULTIPLE SCLEROSIS
     Route: 048
     Dates: start: 20140306
  2. TECFIDERA [Suspect]
     Indication: MULTIPLE SCLEROSIS
     Route: 048
     Dates: start: 20140306
  3. FISH OIL [Concomitant]
  4. GABAPENTIN [Concomitant]
  5. LEVOXYL [Concomitant]
  6. NEURONTIN [Concomitant]
  7. TRIAMTERENE-HCTZ [Concomitant]
  8. VITAMIN C [Concomitant]
  9. VITAMIN D [Concomitant]
  10. VITAMIN E COMPLETE [Concomitant]
  11. VIT B12 [Concomitant]

REACTIONS (3)
  - Extra dose administered [Not Recovered/Not Resolved]
  - Flushing [Recovered/Resolved]
  - Pruritus [Recovered/Resolved]
